FAERS Safety Report 18107342 (Version 1)
Quarter: 2020Q3

REPORT INFORMATION
  Report Type: Spontaneous
  Country: US (occurrence: US)
  Receive Date: 20200803
  Receipt Date: 20200803
  Transmission Date: 20201103
  Serious: No
  Sender: FDA-Public Use
  Company Number: None

PATIENT

DRUGS (2)
  1. NP THYROID [Suspect]
     Active Substance: LEVOTHYROXINE\LIOTHYRONINE
     Indication: DRUG THERAPY
     Dosage: TAKE 1 TABLET BY MOUTH ONCE DAILY IN THE MORNING
     Route: 048
  2. ARMOUR THYROID [Concomitant]
     Active Substance: THYROID, PORCINE

REACTIONS (7)
  - Constipation [None]
  - Arrhythmia [None]
  - Alopecia [None]
  - Urine odour abnormal [None]
  - Product odour abnormal [None]
  - Fatigue [None]
  - Product taste abnormal [None]

NARRATIVE: CASE EVENT DATE: 20191217
